FAERS Safety Report 11402311 (Version 1)
Quarter: 2015Q3

REPORT INFORMATION
  Report Type: Other
  Country: US (occurrence: US)
  Receive Date: 20150821
  Receipt Date: 20150821
  Transmission Date: 20151125
  Serious: Yes (Hospitalization)
  Sender: FDA-Public Use
  Company Number: US-UNITED THERAPEUTICS-UNT-2015-010064

PATIENT
  Sex: Female
  Weight: 83.45 kg

DRUGS (1)
  1. ORENITRAM [Suspect]
     Active Substance: TREPROSTINIL
     Indication: PULMONARY HYPERTENSION
     Dosage: 0.5 MG, TID
     Route: 048
     Dates: start: 20150605

REACTIONS (4)
  - Hypotension [Unknown]
  - Headache [Unknown]
  - Dyspnoea [Unknown]
  - Renal failure [Unknown]

NARRATIVE: CASE EVENT DATE: 2015
